FAERS Safety Report 12611810 (Version 1)
Quarter: 2016Q3

REPORT INFORMATION
  Report Type: Spontaneous
  Country: US (occurrence: US)
  Receive Date: 20160801
  Receipt Date: 20160801
  Transmission Date: 20161109
  Serious: No
  Sender: FDA-Public Use
  Company Number: US-PFIZER INC-2996151

PATIENT
  Age: 64 Year
  Sex: Female
  Weight: 98 kg

DRUGS (4)
  1. METHOTREXATE SODIUM. [Suspect]
     Active Substance: METHOTREXATE SODIUM
     Indication: RHEUMATOID ARTHRITIS
     Dosage: 1 MG, FREQ: 1 WEEK, INTERVAL: 1
  2. XELJANZ [Suspect]
     Active Substance: TOFACITINIB CITRATE
     Indication: RHEUMATOID ARTHRITIS
     Dosage: 5 MG, FREQ: 2 DAY, INTERVAL; 1
  3. FOLIC ACID. [Concomitant]
     Active Substance: FOLIC ACID
     Indication: PRODUCT USED FOR UNKNOWN INDICATION
     Dosage: 1 MG, DAILY
  4. LISINOPRIL. [Concomitant]
     Active Substance: LISINOPRIL
     Indication: HYPERTENSION
     Dosage: 12.5 MG, FREQ: 1 DAY, INTERVAL: 1
     Route: 048

REACTIONS (9)
  - Viral infection [Unknown]
  - Nervousness [Unknown]
  - Treatment noncompliance [Unknown]
  - Physical product label issue [Unknown]
  - Secretion discharge [Recovering/Resolving]
  - Stomatitis [Unknown]
  - Butterfly rash [Not Recovered/Not Resolved]
  - Product identification number issue [Unknown]
  - Oral pain [Recovering/Resolving]

NARRATIVE: CASE EVENT DATE: 20150601
